FAERS Safety Report 8083351-1 (Version None)
Quarter: 2012Q1

REPORT INFORMATION
  Report Type: 
  Country: None (occurrence: None)
  Receive Date: 20120127
  Receipt Date: 20110116
  Transmission Date: 20120608
  Serious: No
  Sender: FDA-Public Use
  Company Number: US-ABBOTT-11P-163-0697820-00

PATIENT
  Age: 52 Year
  Sex: Female

DRUGS (8)
  1. LYRICA [Concomitant]
     Indication: PAIN
  2. PREMARIN [Concomitant]
     Indication: PRODUCT USED FOR UNKNOWN INDICATION
     Dosage: 0.625
  3. HUMIRA [Suspect]
     Indication: RHEUMATOID ARTHRITIS
     Dates: start: 20100901
  4. KEPPRA [Concomitant]
     Indication: CONVULSION
  5. AMBIEN [Concomitant]
     Indication: INSOMNIA
  6. KLONOPIN [Concomitant]
     Indication: CONVULSION
  7. LEXAPRO [Concomitant]
     Indication: DEPRESSION
  8. NEXIUM [Concomitant]
     Indication: GASTRIC PH DECREASED

REACTIONS (4)
  - RESPIRATORY TRACT CONGESTION [None]
  - COUGH [None]
  - THROAT IRRITATION [None]
  - SINUSITIS [None]
